FAERS Safety Report 8470328-7 (Version None)
Quarter: 2012Q2

REPORT INFORMATION
  Report Type: 
  Country: None (occurrence: None)
  Receive Date: 20120627
  Receipt Date: 20120621
  Transmission Date: 20120825
  Serious: Yes (Other)
  Sender: FDA-Public Use
  Company Number: US-AMGEN-USASP2012038704

PATIENT

DRUGS (3)
  1. XGEVA [Suspect]
     Indication: HYPERCALCAEMIA
     Dosage: UNK
  2. CALCITONIN SALMON [Concomitant]
  3. SENSIPAR [Suspect]
     Indication: PRODUCT USED FOR UNKNOWN INDICATION
     Dosage: UNK

REACTIONS (3)
  - OFF LABEL USE [None]
  - BLOOD CALCIUM INCREASED [None]
  - BLOOD CALCIUM DECREASED [None]
